FAERS Safety Report 10440870 (Version 1)
Quarter: 2014Q3

REPORT INFORMATION
  Report Type: Spontaneous
  Country: US (occurrence: None)
  Receive Date: 20140908
  Receipt Date: 20140908
  Transmission Date: 20150326
  Serious: Yes (Hospitalization)
  Sender: FDA-Public Use
  Company Number: None

PATIENT
  Age: 36 Year
  Sex: Female
  Weight: 106.6 kg

DRUGS (1)
  1. NORETHINDRONE. [Suspect]
     Active Substance: NORETHINDRONE
     Indication: CONTRACEPTION
     Dosage: 1 PILL ONCE DAILY TAKEN BY MOUTH
     Route: 048
     Dates: start: 20131105, end: 20140719

REACTIONS (8)
  - Arthralgia [None]
  - Hypoaesthesia [None]
  - Chest pain [None]
  - Back pain [None]
  - Pain in extremity [None]
  - Abasia [None]
  - Peripheral swelling [None]
  - Impaired driving ability [None]

NARRATIVE: CASE EVENT DATE: 20140712
